FAERS Safety Report 8351046-2 (Version None)
Quarter: 2012Q2

REPORT INFORMATION
  Report Type: 
  Country: None (occurrence: None)
  Receive Date: 20120510
  Receipt Date: 20120503
  Transmission Date: 20120825
  Serious: Yes (Other)
  Sender: FDA-Public Use
  Company Number: JP-PFIZER INC-2012079388

PATIENT
  Age: 14 Year
  Sex: Male

DRUGS (2)
  1. MIGLITOL [Suspect]
     Indication: TYPE 1 DIABETES MELLITUS
     Dosage: 25 MG, 3X/DAY
     Route: 048
     Dates: start: 20111101, end: 20111206
  2. MIGLITOL [Suspect]
     Dosage: 50 MG, 3X/DAY
     Route: 048
     Dates: start: 20111207

REACTIONS (2)
  - KETOSIS [None]
  - INFLUENZA [None]
